FAERS Safety Report 4733434-6 (Version None)
Quarter: 2005Q3

REPORT INFORMATION
  Report Type: 
  Country: None (occurrence: None)
  Receive Date: 20050801
  Receipt Date: 20050801
  Transmission Date: 20060218
  Serious: Yes (Life-Threatening, Hospitalization)
  Sender: FDA-Public Use
  Company Number: None

PATIENT
  Age: 55 Year
  Sex: Male
  Weight: 90 kg

DRUGS (10)
  1. VANCOMYCIN [Suspect]
     Indication: INFECTION
     Dosage: 1000 MG/ 200 ML D5W IV
     Route: 042
     Dates: start: 20050411
  2. ALLOPURINOL [Concomitant]
  3. DIGOXIN [Concomitant]
  4. FOSINOPRIL SODIUM [Concomitant]
  5. FUROSEMIDE [Concomitant]
  6. METOLAZONE [Concomitant]
  7. GLYBURIDE [Concomitant]
  8. SIMVASTATIN [Concomitant]
  9. WARFARIN [Concomitant]
  10. NPH INSULIN [Concomitant]

REACTIONS (7)
  - DYSPNOEA [None]
  - ERYTHEMA [None]
  - HAEMODYNAMIC INSTABILITY [None]
  - HYPERSENSITIVITY [None]
  - HYPOTENSION [None]
  - TACHYPNOEA [None]
  - VENTRICULAR TACHYCARDIA [None]
